FAERS Safety Report 7995724-3 (Version None)
Quarter: 2011Q4

REPORT INFORMATION
  Report Type: 
  Country: None (occurrence: None)
  Receive Date: 20111220
  Receipt Date: 20111206
  Transmission Date: 20120403
  Serious: Yes (Other)
  Sender: FDA-Public Use
  Company Number: TW-ROCHE-1023324

PATIENT

DRUGS (3)
  1. PERFLUTREN [Suspect]
     Indication: RETINAL HAEMORRHAGE
     Dosage: ONCE
  2. BETADINE [Concomitant]
  3. ALTEPLASE [Suspect]
     Indication: RETINAL HAEMORRHAGE
     Dosage: ONCE
     Route: 050

REACTIONS (1)
  - RETINAL DETACHMENT [None]
